FAERS Safety Report 6212566-X (Version None)
Quarter: 2009Q2

REPORT INFORMATION
  Report Type: 
  Country: None (occurrence: None)
  Receive Date: 20090603
  Receipt Date: 20090525
  Transmission Date: 20091009
  Serious: Yes (Other)
  Sender: FDA-Public Use
  Company Number: PHHY2009US20555

PATIENT
  Age: 65 Year
  Sex: Male

DRUGS (1)
  1. ZOMETA [Suspect]
     Indication: MULTIPLE MYELOMA

REACTIONS (6)
  - IMPAIRED HEALING [None]
  - JAW OPERATION [None]
  - MOUTH ULCERATION [None]
  - OSTEONECROSIS [None]
  - SWELLING FACE [None]
  - TOOTH EXTRACTION [None]
